FAERS Safety Report 17110593 (Version 1)
Quarter: 2019Q4

REPORT INFORMATION
  Report Type: Spontaneous
  Country: US (occurrence: US)
  Receive Date: 20191204
  Receipt Date: 20191204
  Transmission Date: 20200122
  Serious: No
  Sender: FDA-Public Use
  Company Number: US-PFIZER INC-2019520516

PATIENT
  Age: 60 Year
  Sex: Male
  Weight: 113.4 kg

DRUGS (2)
  1. VIAGRA [Suspect]
     Active Substance: SILDENAFIL CITRATE
     Indication: ERECTILE DYSFUNCTION
     Dosage: 10 MG, AS NEEDED
     Route: 048
  2. PEPCID [Concomitant]
     Active Substance: FAMOTIDINE
     Indication: GASTRIC DISORDER
     Dosage: UNK, 2X/DAY (DOSE UNKNOWN TO REPORTER)

REACTIONS (4)
  - Cyanopsia [Not Recovered/Not Resolved]
  - Flushing [Unknown]
  - Vision blurred [Not Recovered/Not Resolved]
  - Headache [Unknown]

NARRATIVE: CASE EVENT DATE: 20191129
